FAERS Safety Report 6451587-9 (Version None)
Quarter: 2009Q4

REPORT INFORMATION
  Report Type: 
  Country: None (occurrence: None)
  Receive Date: 20091120
  Receipt Date: 20091120
  Transmission Date: 20100525
  Serious: Yes (Other)
  Sender: FDA-Public Use
  Company Number: None

PATIENT
  Age: 66 Year
  Sex: Male
  Weight: 103.4201 kg

DRUGS (2)
  1. VYTORIN [Suspect]
     Indication: LOW DENSITY LIPOPROTEIN
     Dosage: 10 MG EVER DAY PO
     Route: 048
     Dates: start: 20050101, end: 20091116
  2. VYTORIN [Suspect]
     Indication: MYOCARDIAL INFARCTION
     Dosage: 10 MG EVER DAY PO
     Route: 048
     Dates: start: 20050101, end: 20091116

REACTIONS (7)
  - ARTHRALGIA [None]
  - DRUG INEFFECTIVE [None]
  - DYSPEPSIA [None]
  - DYSPNOEA [None]
  - PAIN [None]
  - PO2 DECREASED [None]
  - RED BLOOD CELL COUNT INCREASED [None]
